FAERS Safety Report 24703573 (Version 1)
Quarter: 2024Q4

REPORT INFORMATION
  Report Type: Spontaneous
  Country: US (occurrence: US)
  Receive Date: 20241206
  Receipt Date: 20241206
  Transmission Date: 20250115
  Serious: Yes (Other)
  Sender: ABBVIE
  Company Number: US-ABBVIE-6032355

PATIENT
  Age: 29 Year
  Sex: Female

DRUGS (1)
  1. RISANKIZUMAB [Suspect]
     Active Substance: RISANKIZUMAB
     Indication: Crohn^s disease
     Route: 058

REACTIONS (4)
  - Surgery [Unknown]
  - Crohn^s disease [Unknown]
  - Device issue [Unknown]
  - Crohn^s disease [Recovered/Resolved]

NARRATIVE: CASE EVENT DATE: 20230101
